FAERS Safety Report 25647799 (Version 1)
Quarter: 2025Q3

REPORT INFORMATION
  Report Type: Spontaneous
  Country: GB (occurrence: GB)
  Receive Date: 20250806
  Receipt Date: 20250806
  Transmission Date: 20251021
  Serious: Yes (Other)
  Sender: AUROBINDO
  Company Number: GB-MHRA-MED-202507281310199210-SNPKH

PATIENT
  Age: 74 Year
  Sex: Female

DRUGS (1)
  1. CLARITHROMYCIN [Suspect]
     Active Substance: CLARITHROMYCIN
     Indication: Infection
     Route: 065
     Dates: start: 20250720, end: 20250720

REACTIONS (2)
  - Medication error [Unknown]
  - Catheter site pain [Recovered/Resolved]

NARRATIVE: CASE EVENT DATE: 20250720
